FAERS Safety Report 5233857-5 (Version None)
Quarter: 2007Q1

REPORT INFORMATION
  Report Type: 
  Country: None (occurrence: None)
  Receive Date: 20061208
  Receipt Date: 20060410
  Transmission Date: 20070707
  Serious: Yes (Other)
  Sender: FDA-Public Use
  Company Number: 2006UW04444

PATIENT
  Age: 46 Year
  Sex: Female
  Weight: 69.8539 kg

DRUGS (5)
  1. CRESTOR [Suspect]
     Indication: LOW DENSITY LIPOPROTEIN INCREASED
     Dosage: 10 MG QD PO
     Route: 048
     Dates: start: 20051220, end: 20060307
  2. SYNTHROID [Concomitant]
  3. LANTUS [Concomitant]
  4. LISINOPRIL W/HYDROCHLOROTHIAZIDE [Concomitant]
  5. AMARYL [Concomitant]

REACTIONS (5)
  - ABDOMINAL DISTENSION [None]
  - HEPATIC ENZYME INCREASED [None]
  - MALAISE [None]
  - PAIN [None]
  - SWELLING [None]
